FAERS Safety Report 15339058 (Version 4)
Quarter: 2019Q2

REPORT INFORMATION
  Report Type: Spontaneous
  Country: JP (occurrence: JP)
  Receive Date: 20180831
  Receipt Date: 20190415
  Transmission Date: 20190711
  Serious: Yes (Hospitalization)
  Sender: FDA-Public Use
  Company Number: JP-CELGENEUS-JPN-20180809368

PATIENT
  Age: 62 Year
  Sex: Male
  Weight: 68.5 kg

DRUGS (11)
  1. ABRAXANE [Suspect]
     Active Substance: PACLITAXEL
     Dosage: 129 MILLIGRAM
     Route: 041
     Dates: start: 20180406, end: 20180406
  2. ABRAXANE [Suspect]
     Active Substance: PACLITAXEL
     Dosage: 166 MILLIGRAM
     Route: 041
     Dates: start: 20171124
  3. FUROSEMIDE. [Concomitant]
     Active Substance: FUROSEMIDE
     Indication: OEDEMA
     Dosage: 20 MILLIGRAM
     Route: 048
     Dates: start: 20180302, end: 20180603
  4. CALONAL [Concomitant]
     Active Substance: ACETAMINOPHEN
     Indication: PRODUCT USED FOR UNKNOWN INDICATION
     Route: 048
  5. SODIUM FERROUS CITRATE [Concomitant]
     Active Substance: SODIUM FERROUS CITRATE
     Indication: ANAEMIA
     Dosage: 100 MILLIGRAM
     Route: 048
     Dates: start: 20180717, end: 20180805
  6. ABRAXANE [Suspect]
     Active Substance: PACLITAXEL
     Indication: PANCREATIC CARCINOMA
     Dosage: 208 MILLIGRAM
     Route: 041
     Dates: start: 20171101
  7. ABRAXANE [Suspect]
     Active Substance: PACLITAXEL
     Dosage: 147 MILLIGRAM
     Route: 041
     Dates: start: 20171215
  8. GEMCITABINE HYDROCHLORIDE. [Suspect]
     Active Substance: GEMCITABINE HYDROCHLORIDE
     Dosage: 1331 MILLIGRAM
     Route: 065
     Dates: start: 20171124
  9. GEMCITABINE HYDROCHLORIDE. [Suspect]
     Active Substance: GEMCITABINE HYDROCHLORIDE
     Dosage: 1039 MILLIGRAM
     Route: 065
     Dates: start: 20180406, end: 20180806
  10. GEMCITABINE HYDROCHLORIDE. [Suspect]
     Active Substance: GEMCITABINE HYDROCHLORIDE
     Indication: PANCREATIC CARCINOMA
     Dosage: 1664 MILLIGRAM
     Route: 065
     Dates: start: 20171101
  11. GEMCITABINE HYDROCHLORIDE. [Suspect]
     Active Substance: GEMCITABINE HYDROCHLORIDE
     Dosage: 1177 MILLIGRAM
     Route: 065
     Dates: start: 20171215

REACTIONS (5)
  - Renal impairment [Unknown]
  - Pleural effusion [Recovered/Resolved]
  - Hypoalbuminaemia [Recovered/Resolved]
  - Bone marrow failure [Unknown]
  - Generalised oedema [Recovered/Resolved]

NARRATIVE: CASE EVENT DATE: 20180721
